FAERS Safety Report 4484209-7 (Version None)
Quarter: 2004Q4

REPORT INFORMATION
  Report Type: 
  Country: None (occurrence: None)
  Receive Date: 20041025
  Receipt Date: 20030219
  Transmission Date: 20050328
  Serious: Yes (Life-Threatening, Hospitalization, Disabling)
  Sender: FDA-Public Use
  Company Number: PHBS2003JP02044

PATIENT
  Age: 12 Year
  Sex: Female
  Weight: 28 kg

DRUGS (2)
  1. VOLTAREN [Suspect]
     Indication: PYREXIA
     Dosage: 1 DF, ONCE/SINGLE
     Route: 054
     Dates: start: 20021213, end: 20021213
  2. PA [Suspect]
     Indication: PYREXIA
     Dates: start: 20021212, end: 20021213

REACTIONS (17)
  - APNOEA [None]
  - CLONIC CONVULSION [None]
  - COMA [None]
  - DEPRESSED LEVEL OF CONSCIOUSNESS [None]
  - DIARRHOEA [None]
  - DISORIENTATION [None]
  - DISSEMINATED INTRAVASCULAR COAGULATION [None]
  - ENCEPHALOPATHY [None]
  - HYPOTENSION [None]
  - HYPOTHERMIA [None]
  - MULTI-ORGAN FAILURE [None]
  - PUPILLARY REFLEX IMPAIRED [None]
  - RESPIRATORY ARREST [None]
  - SHOCK [None]
  - SUBARACHNOID HAEMORRHAGE [None]
  - UPPER RESPIRATORY TRACT INFLAMMATION [None]
  - VOMITING [None]
